FAERS Safety Report 6490778-8 (Version None)
Quarter: 2009Q4

REPORT INFORMATION
  Report Type: 
  Country: None (occurrence: None)
  Receive Date: 20091211
  Receipt Date: 20091208
  Transmission Date: 20100525
  Serious: Yes (Death)
  Sender: FDA-Public Use
  Company Number: JP-JNJFOC-20091202972

PATIENT
  Age: 83 Year
  Sex: Female

DRUGS (6)
  1. DUROTEP MT PATCH [Suspect]
     Indication: CANCER PAIN
     Route: 062
     Dates: start: 20091201
  2. VOLTAREN [Suspect]
     Indication: ANALGESIC THERAPY
     Route: 048
     Dates: start: 20091201
  3. LOXONIN [Concomitant]
     Indication: ANALGESIC THERAPY
     Route: 048
     Dates: start: 20091019
  4. MUCOSTA [Concomitant]
     Indication: GASTRITIS
     Route: 048
     Dates: start: 20091019
  5. OMEPRAL [Concomitant]
     Indication: GASTRIC ULCER
     Route: 048
     Dates: start: 20091019
  6. ARICEPT [Concomitant]
     Indication: DEMENTIA
     Route: 048
     Dates: start: 20090923

REACTIONS (2)
  - BLOOD PRESSURE DECREASED [None]
  - RESPIRATORY DEPRESSION [None]
